FAERS Safety Report 5263797-7 (Version None)
Quarter: 2007Q1

REPORT INFORMATION
  Report Type: 
  Country: None (occurrence: None)
  Receive Date: 20070313
  Receipt Date: 20070306
  Transmission Date: 20070707
  Serious: Yes (Disabling)
  Sender: FDA-Public Use
  Company Number: US-MERCK-0703USA00797

PATIENT
  Age: 73 Year
  Sex: Female

DRUGS (7)
  1. ZETIA [Suspect]
     Indication: BLOOD CHOLESTEROL INCREASED
     Route: 048
     Dates: start: 20070101, end: 20070209
  2. SIMVASTATIN [Concomitant]
     Route: 065
  3. PREVACID [Concomitant]
     Route: 065
  4. DIOVAN [Concomitant]
     Route: 065
  5. HYDROCHLOROTHIAZIDE [Concomitant]
     Route: 065
  6. TOPROL-XL [Concomitant]
     Route: 048
  7. ASPIRIN [Concomitant]
     Route: 065

REACTIONS (4)
  - ANTINUCLEAR ANTIBODY POSITIVE [None]
  - COMPLEMENT FACTOR C3 INCREASED [None]
  - PRURITUS [None]
  - SYSTEMIC LUPUS ERYTHEMATOSUS RASH [None]
